FAERS Safety Report 9968805 (Version 1)
Quarter: 2014Q1

REPORT INFORMATION
  Report Type: Spontaneous
  Country: US (occurrence: US)
  Receive Date: 20140306
  Receipt Date: 20140306
  Transmission Date: 20141002
  Serious: No
  Sender: FDA-Public Use
  Company Number: US-ABBVIE-13P-163-1146027-00

PATIENT
  Age: 74 Year
  Sex: Female
  Weight: 59.02 kg

DRUGS (10)
  1. HUMIRA [Suspect]
     Indication: RHEUMATOID ARTHRITIS
     Dates: end: 2008
  2. HUMIRA [Suspect]
  3. METHOTREXATE [Concomitant]
     Indication: RHEUMATOID ARTHRITIS
  4. DIOVAN [Concomitant]
     Indication: HYPERTENSION
  5. PREVACID [Concomitant]
     Indication: GASTRIC DISORDER
  6. ASPIRIN [Concomitant]
     Indication: TRANSIENT ISCHAEMIC ATTACK
     Dosage: 81 MG DAILY
  7. CALCIUM [Concomitant]
     Indication: OSTEOPOROSIS
  8. FISH OIL [Concomitant]
     Indication: VITAMIN SUPPLEMENTATION
  9. MULTIVITAMIN [Concomitant]
     Indication: VITAMIN SUPPLEMENTATION
  10. FOLIC ACID [Concomitant]
     Indication: SUPPLEMENTATION THERAPY

REACTIONS (6)
  - Transient ischaemic attack [Unknown]
  - Glaucoma [Not Recovered/Not Resolved]
  - Device malfunction [Unknown]
  - Injection site bruising [Unknown]
  - Injection site pain [Recovered/Resolved]
  - Injection site pain [Not Recovered/Not Resolved]
